FAERS Safety Report 16625690 (Version 5)
Quarter: 2019Q4

REPORT INFORMATION
  Report Type: Report from Study
  Country: US (occurrence: US)
  Receive Date: 20190724
  Receipt Date: 20191213
  Transmission Date: 20200122
  Serious: No
  Sender: FDA-Public Use
  Company Number: PHEH2019US030368

PATIENT
  Sex: Male

DRUGS (1)
  1. COSENTYX [Suspect]
     Active Substance: SECUKINUMAB
     Indication: PSORIASIS
     Dosage: 150 MG, QMO (Q4W)
     Route: 058
     Dates: start: 201904

REACTIONS (3)
  - Psoriasis [Recovered/Resolved]
  - Incorrect dose administered [Unknown]
  - Macule [Unknown]
